FAERS Safety Report 9308876 (Version 1)
Quarter: 2013Q2

REPORT INFORMATION
  Report Type: Spontaneous
  Country: US (occurrence: US)
  Receive Date: 20130524
  Receipt Date: 20130524
  Transmission Date: 20140414
  Serious: Yes (Other)
  Sender: FDA-Public Use
  Company Number: US-PFIZER INC-2013155963

PATIENT
  Age: 82 Year
  Sex: Female
  Weight: 81.63 kg

DRUGS (3)
  1. CELEBREX [Suspect]
     Indication: ARTHRALGIA
     Dosage: 200 MG, 1X/DAY
     Route: 048
  2. BABY ASPIRIN [Concomitant]
     Dosage: UNK
  3. WARFARIN [Concomitant]
     Dosage: UNK

REACTIONS (1)
  - Arthropathy [Recovered/Resolved]
